FAERS Safety Report 9867526 (Version 2)
Quarter: 2014Q1

REPORT INFORMATION
  Report Type: Spontaneous
  Country: US (occurrence: US)
  Receive Date: 20140204
  Receipt Date: 20140211
  Transmission Date: 20141002
  Serious: No
  Sender: FDA-Public Use
  Company Number: US-BAYER-2014-017761

PATIENT
  Age: 67 Year
  Sex: Male

DRUGS (1)
  1. ALEVE CAPLET [Suspect]
     Indication: SCIATICA
     Dosage: 2 DF, TID
     Route: 048
     Dates: start: 2013

REACTIONS (2)
  - Intentional drug misuse [None]
  - Extra dose administered [None]
